FAERS Safety Report 4330223-1 (Version None)
Quarter: 2004Q1

REPORT INFORMATION
  Report Type: 
  Country: None (occurrence: None)
  Receive Date: 20040329
  Receipt Date: 20040318
  Transmission Date: 20041129
  Serious: Yes (Other)
  Sender: FDA-Public Use
  Company Number: 200416134BWH

PATIENT

DRUGS (3)
  1. TRASYLOL [Suspect]
     Indication: CORONARY ARTERY SURGERY
     Dosage: NI, ONCE, INTRAVENOUS
     Route: 042
  2. AMICAR [Concomitant]
  3. HEPARIN [Concomitant]

REACTIONS (2)
  - BLOOD PRESSURE DECREASED [None]
  - VASCULAR GRAFT OCCLUSION [None]
